FAERS Safety Report 8876705 (Version 1)
Quarter: 2012Q4

REPORT INFORMATION
  Report Type: 
  Country: US (occurrence: US)
  Receive Date: 20121023
  Receipt Date: 20121023
  Transmission Date: 20130627
  Serious: No
  Sender: FDA-Public Use
  Company Number: US-AMGEN-USASP2012010665

PATIENT
  Sex: Male
  Weight: 90.7 kg

DRUGS (9)
  1. ENBREL [Suspect]
     Indication: PRODUCT USED FOR UNKNOWN INDICATION
     Dosage: 50 mg, qwk
  2. LISINOPRIL [Concomitant]
     Dosage: 10 mg, UNK
  3. SIMVASTATIN [Concomitant]
     Dosage: 5 mg, UNK
  4. VITAMIN E                          /00110501/ [Concomitant]
     Dosage: 400 UNK, UNK
  5. VITAMIN C                          /00008001/ [Concomitant]
     Dosage: 500 mg, UNK
  6. FISH OIL [Concomitant]
  7. CALCIUM [Concomitant]
  8. PROSTATE HEALTH WITH SAW PALMETTO AND ZINC [Concomitant]
  9. MULTIVITAMIN                       /00097801/ [Concomitant]

REACTIONS (1)
  - Diarrhoea [Unknown]
